FAERS Safety Report 4593884-8 (Version None)
Quarter: 2005Q1

REPORT INFORMATION
  Report Type: 
  Country: None (occurrence: None)
  Receive Date: 20050301
  Receipt Date: 20050223
  Transmission Date: 20050727
  Serious: Yes (Other)
  Sender: FDA-Public Use
  Company Number: AU-GLAXOSMITHKLINE-B0372724A

PATIENT
  Age: 36 Year
  Sex: Female

DRUGS (1)
  1. NICABATE CQ 2MG LOZENGE [Suspect]
     Indication: SMOKING CESSATION THERAPY
     Route: 002
     Dates: start: 20020101

REACTIONS (7)
  - DRUG ABUSER [None]
  - EMOTIONAL DISORDER [None]
  - HEADACHE [None]
  - INTENTIONAL MISUSE [None]
  - IRRITABILITY [None]
  - SUICIDAL IDEATION [None]
  - WEIGHT INCREASED [None]
